FAERS Safety Report 6208593-9 (Version None)
Quarter: 2009Q2

REPORT INFORMATION
  Report Type: 
  Country: None (occurrence: None)
  Receive Date: 20090529
  Receipt Date: 20090525
  Transmission Date: 20091009
  Serious: Yes (Other)
  Sender: FDA-Public Use
  Company Number: JP-JNJFOC-20090503528

PATIENT
  Sex: Male

DRUGS (11)
  1. DUROTEP MT [Suspect]
     Route: 062
  2. DUROTEP MT [Suspect]
     Route: 062
  3. DUROTEP MT [Suspect]
     Indication: CANCER PAIN
     Route: 062
  4. OXYCODONE HYDROCHLORIDE [Concomitant]
     Indication: CANCER PAIN
     Route: 048
  5. MORPHINE [Concomitant]
     Indication: CANCER PAIN
     Route: 048
  6. CASODEX [Concomitant]
     Route: 048
  7. PURSENNID [Concomitant]
     Indication: CONSTIPATION
     Route: 048
  8. ZOMETA [Concomitant]
     Route: 042
  9. ZOMETA [Concomitant]
     Route: 042
  10. ZOMETA [Concomitant]
     Route: 042
  11. ZOMETA [Concomitant]
     Route: 042

REACTIONS (2)
  - DEMENTIA [None]
  - MUSCULAR WEAKNESS [None]
